FAERS Safety Report 16232032 (Version 1)
Quarter: 2019Q2

REPORT INFORMATION
  Report Type: Spontaneous
  Country: CA (occurrence: CA)
  Receive Date: 20190424
  Receipt Date: 20190424
  Transmission Date: 20190711
  Serious: Yes (Death, Other)
  Sender: FDA-Public Use
  Company Number: CA-AMGEN-CANSP2019062309

PATIENT
  Age: 76 Year
  Sex: Male

DRUGS (8)
  1. XGEVA [Suspect]
     Active Substance: DENOSUMAB
     Indication: PROPHYLAXIS
     Dosage: UNK, QMO
     Route: 058
  2. XTANDI [Concomitant]
     Active Substance: ENZALUTAMIDE
  3. RAMIPRIL. [Concomitant]
     Active Substance: RAMIPRIL
  4. METOPROLOL. [Concomitant]
     Active Substance: METOPROLOL
  5. POTASSIUM CHLORIDE. [Concomitant]
     Active Substance: POTASSIUM CHLORIDE
  6. LOVENOX [Concomitant]
     Active Substance: ENOXAPARIN SODIUM
     Route: 058
  7. METFORMIN [Concomitant]
     Active Substance: METFORMIN HYDROCHLORIDE
  8. SLOW-K [Concomitant]
     Active Substance: POTASSIUM CHLORIDE

REACTIONS (1)
  - Death [Fatal]
